FAERS Safety Report 5850789-X (Version None)
Quarter: 2008Q3

REPORT INFORMATION
  Report Type: 
  Country: None (occurrence: None)
  Receive Date: 20080819
  Receipt Date: 20080819
  Transmission Date: 20090109
  Serious: Yes (Hospitalization)
  Sender: FDA-Public Use
  Company Number: None

PATIENT
  Age: 61 Year
  Sex: Male
  Weight: 104 kg

DRUGS (2)
  1. IBUPROFEN [Suspect]
     Dosage: 600 MG TID PO
     Route: 048
     Dates: start: 20080613, end: 20080623
  2. SULFAMETHOXAZOLE AND TRIMETHOPRIM [Suspect]
     Dosage: 1600/320 MG BID PO
     Route: 048
     Dates: start: 20080610, end: 20080613

REACTIONS (1)
  - NEPHRITIS [None]
